FAERS Safety Report 4759439-7 (Version None)
Quarter: 2005Q3

REPORT INFORMATION
  Report Type: 
  Country: None (occurrence: None)
  Receive Date: 20050831
  Receipt Date: 20050817
  Transmission Date: 20060218
  Serious: Yes (Other)
  Sender: FDA-Public Use
  Company Number: US-2005-016867

PATIENT
  Age: 20 Year
  Sex: Female

DRUGS (1)
  1. YASMIN [Suspect]
     Dosage: 1 TAB(S), 1 X/DAY, ORAL
     Route: 048
     Dates: start: 20050701

REACTIONS (2)
  - HEPATITIS [None]
  - INFLUENZA LIKE ILLNESS [None]
